FAERS Safety Report 12867720 (Version 1)
Quarter: 2016Q4

REPORT INFORMATION
  Report Type: Spontaneous
  Country: CH (occurrence: CH)
  Receive Date: 20161020
  Receipt Date: 20161020
  Transmission Date: 20170207
  Serious: Yes (Life-Threatening, Other)
  Sender: FDA-Public Use
  Company Number: CH-ELI_LILLY_AND_COMPANY-CH201608012623

PATIENT
  Age: 45 Year
  Sex: Female

DRUGS (5)
  1. ELTROXIN LF [Concomitant]
     Indication: HYPOTHYROIDISM
     Dosage: 0.1 MG, UNK
     Route: 048
  2. VI D3 [Concomitant]
     Indication: HYPOVITAMINOSIS
     Route: 048
  3. LISITRIL [Concomitant]
     Active Substance: LISINOPRIL
     Indication: HYPERTENSION
  4. HYDROCORTISONE. [Concomitant]
     Active Substance: HYDROCORTISONE
     Indication: ADRENAL INSUFFICIENCY
     Dosage: 10 MG, UNK
  5. FORSTEO [Suspect]
     Active Substance: TERIPARATIDE
     Indication: OSTEOPOROSIS
     Dosage: 20 UG, QD
     Route: 058
     Dates: start: 20160819, end: 20160823

REACTIONS (6)
  - Injection site erythema [Recovered/Resolved]
  - Adrenal insufficiency [Recovered/Resolved]
  - Adrenocortical insufficiency acute [Recovered/Resolved]
  - Stress [Recovered/Resolved]
  - Asthenia [Recovered/Resolved]
  - Asthma [Recovered/Resolved]

NARRATIVE: CASE EVENT DATE: 20160822
